FAERS Safety Report 24887443 (Version 2)
Quarter: 2025Q3

REPORT INFORMATION
  Report Type: Spontaneous
  Country: CA (occurrence: CA)
  Receive Date: 20250127
  Receipt Date: 20250814
  Transmission Date: 20251021
  Serious: Yes (Hospitalization, Other)
  Sender: CURRAX PHARMACEUTICALS
  Company Number: CA-CURRAX PHARMACEUTICALS LLC-CA-2025CUR000187

PATIENT
  Age: 47 Year
  Sex: Female

DRUGS (53)
  1. DOXEPIN [Interacting]
     Active Substance: DOXEPIN
     Indication: Major depression
     Dosage: 100.0 MILLIGRAM(S) (100 MILLIGRAM(S), 1 IN 1 DAY)
     Route: 048
  2. DOXEPIN [Interacting]
     Active Substance: DOXEPIN
     Dosage: CAPSULE 150.0 MILLIGRAM(S) (150 MILLIGRAM(S), 1 IN 1 DAY)
     Route: 048
  3. DOXEPIN [Interacting]
     Active Substance: DOXEPIN
     Dosage: 50.0 MILLIGRAM(S) (50 MILLIGRAM(S), 1 IN 1 DAY)
     Route: 048
  4. VALPROIC ACID [Interacting]
     Active Substance: VALPROIC ACID
     Indication: Affective disorder
     Route: 065
  5. VALPROIC ACID [Interacting]
     Active Substance: VALPROIC ACID
     Indication: Mania
     Dosage: 1000 MILLIGRAM(S) (1000 MILLIGRAM(S), 1 IN 1 DAY), TABLET
     Route: 048
  6. VALPROIC ACID [Interacting]
     Active Substance: VALPROIC ACID
     Dosage: 750.0 MILLIGRAM(S) (750 MILLIGRAM(S), 1 IN 1 DAY), TABLET
     Route: 048
  7. RISPERIDONE [Interacting]
     Active Substance: RISPERIDONE
     Indication: Affective disorder
     Route: 065
  8. RISPERIDONE [Interacting]
     Active Substance: RISPERIDONE
     Dosage: 1.0 MILLIGRAM(S) (1 MILLIGRAM(S), 1 IN 1 DAY)
     Route: 048
  9. RISPERIDONE [Interacting]
     Active Substance: RISPERIDONE
     Dosage: 1.0 MILLIGRAM(S) (1 MILLIGRAM(S), 1 IN 1 DAY)
     Route: 048
  10. RISPERIDONE [Interacting]
     Active Substance: RISPERIDONE
     Dosage: 1.0 MILLIGRAM(S) (1 MILLIGRAM(S), 1 IN 1 DAY)
     Route: 048
  11. QUETIAPINE FUMARATE [Suspect]
     Active Substance: QUETIAPINE FUMARATE
     Indication: Major depression
     Dosage: 100.0 MILLIGRAM(S) (100 MILLIGRAM(S), 1 IN 1 DAY)
     Route: 048
  12. QUETIAPINE FUMARATE [Suspect]
     Active Substance: QUETIAPINE FUMARATE
     Dosage: 100.0 MILLIGRAM(S) (100 MILLIGRAM(S), 1 IN 1 DAY)
     Route: 048
  13. QUETIAPINE FUMARATE [Suspect]
     Active Substance: QUETIAPINE FUMARATE
     Dosage: 100.0 MILLIGRAM(S) (100 MILLIGRAM(S), 1 IN 1 DAY)
     Route: 048
  14. QUETIAPINE FUMARATE [Suspect]
     Active Substance: QUETIAPINE FUMARATE
     Route: 065
  15. LORAZEPAM [Interacting]
     Active Substance: LORAZEPAM
     Indication: Withdrawal syndrome
     Route: 065
  16. LORAZEPAM [Interacting]
     Active Substance: LORAZEPAM
     Indication: Anxiety
     Route: 048
  17. LORAZEPAM [Interacting]
     Active Substance: LORAZEPAM
     Route: 048
  18. LORAZEPAM [Interacting]
     Active Substance: LORAZEPAM
     Route: 048
  19. CYCLOBENZAPRINE HYDROCHLORIDE [Suspect]
     Active Substance: CYCLOBENZAPRINE HYDROCHLORIDE
     Indication: Pain
     Route: 048
  20. CYCLOBENZAPRINE HYDROCHLORIDE [Suspect]
     Active Substance: CYCLOBENZAPRINE HYDROCHLORIDE
     Dosage: 20.0 MILLIGRAM(S) (10 MILLIGRAM(S), 1 IN 12 HOUR)
     Route: 048
  21. GABAPENTIN [Suspect]
     Active Substance: GABAPENTIN
     Indication: Pain
     Route: 065
  22. GABAPENTIN [Suspect]
     Active Substance: GABAPENTIN
     Dosage: 1800 MILLIGRAM(S) (600 MILLIGRAM(S), 1 IN 8 HOUR
     Route: 048
  23. METHADONE HYDROCHLORIDE [Suspect]
     Active Substance: METHADONE HYDROCHLORIDE
     Indication: Drug use disorder
     Dosage: 75.0 MILLIGRAM(S) (75 MILLIGRAM(S), 1 IN 1 DAY)
     Route: 048
  24. METHADONE HYDROCHLORIDE [Suspect]
     Active Substance: METHADONE HYDROCHLORIDE
     Dosage: 75.0 MILLIGRAM(S) (75 MILLIGRAM(S), 1 IN 1 DAY)
     Route: 048
  25. METHADONE HYDROCHLORIDE [Suspect]
     Active Substance: METHADONE HYDROCHLORIDE
     Dosage: 75.0 MILLIGRAM(S) (75 MILLIGRAM(S), 1 IN 1 DAY)
     Route: 048
  26. METHADONE HYDROCHLORIDE [Suspect]
     Active Substance: METHADONE HYDROCHLORIDE
     Dosage: 30.0 MILLIGRAM(S) (30 MILLIGRAM(S), 1 IN 1 DAY)
     Route: 048
  27. FLUOXETINE HYDROCHLORIDE [Suspect]
     Active Substance: FLUOXETINE HYDROCHLORIDE
     Indication: Major depression
     Dosage: 40.0 MILLIGRAM(S) (40 MILLIGRAM(S), 1 IN 1 DAY
     Route: 048
  28. FLUOXETINE HYDROCHLORIDE [Suspect]
     Active Substance: FLUOXETINE HYDROCHLORIDE
     Dosage: 20.0 MILLIGRAM(S) (20 MILLIGRAM(S), 1 IN 1 DAY)
     Route: 048
  29. FLUOXETINE HYDROCHLORIDE [Suspect]
     Active Substance: FLUOXETINE HYDROCHLORIDE
     Dosage: 80.0 MILLIGRAM(S) (80 MILLIGRAM(S), 1 IN 1 DAY)
     Route: 048
  30. FLUOXETINE HYDROCHLORIDE [Suspect]
     Active Substance: FLUOXETINE HYDROCHLORIDE
     Dosage: 60.0 MILLIGRAM(S) (60 MILLIGRAM(S), 1 IN 1 DAY)
     Route: 048
  31. DOXEPIN [Suspect]
     Active Substance: DOXEPIN
     Indication: Major depression
     Dosage: 50.0 MILLIGRAM(S) (50 MILLIGRAM(S), 1 IN 1 DAY) CAPSULE
     Route: 048
  32. DOXEPIN [Suspect]
     Active Substance: DOXEPIN
     Dosage: 50.0 MILLIGRAM(S) (50 MILLIGRAM(S), 1 IN 1 DAY) CAPSULE
     Route: 048
  33. DOXEPIN [Suspect]
     Active Substance: DOXEPIN
     Dosage: 100.0 MILLIGRAM(S) (100 MILLIGRAM(S), 1 IN 1 DAY)
     Route: 048
  34. DOXEPIN [Suspect]
     Active Substance: DOXEPIN
     Dosage: 100.0 MILLIGRAM(S) (100 MILLIGRAM(S), 1 IN 1 DAY)
     Route: 048
  35. DOXEPIN [Suspect]
     Active Substance: DOXEPIN
     Dosage: 150.0 MILLIGRAM(S) (150 MILLIGRAM(S), 1 IN 1 DAY)
     Route: 048
  36. DOXEPIN [Suspect]
     Active Substance: DOXEPIN
     Dosage: 150.0 MILLIGRAM(S) (150 MILLIGRAM(S), 1 IN 1 DAY)
     Route: 048
  37. ATENOLOL [Concomitant]
     Active Substance: ATENOLOL
     Indication: Hypertension
     Dosage: 50.0 MILLIGRAM(S) (50 MILLIGRAM(S), 1 IN 1 DAY)
     Route: 048
  38. ATENOLOL [Concomitant]
     Active Substance: ATENOLOL
     Dosage: 50.0 MILLIGRAM(S) (50 MILLIGRAM(S), 1 IN 1 DAY)
     Route: 048
  39. ATENOLOL [Concomitant]
     Active Substance: ATENOLOL
     Dosage: 50.0 MILLIGRAM(S) (50 MILLIGRAM(S), 1 IN 1 DAY)
     Route: 048
  40. ALBUTEROL SULFATE [Concomitant]
     Active Substance: ALBUTEROL SULFATE
     Indication: Chronic obstructive pulmonary disease
  41. ALBUTEROL SULFATE [Concomitant]
     Active Substance: ALBUTEROL SULFATE
     Dosage: 400.0 MICROGRAM(S) (200 MICROGRAM(S), 1 IN 12 HOUR), INHALATION
  42. NAPROXEN SODIUM [Concomitant]
     Active Substance: NAPROXEN SODIUM
     Indication: Pain
  43. NAPROXEN SODIUM [Concomitant]
     Active Substance: NAPROXEN SODIUM
     Dosage: 1000 MILLIGRAM(S) (500 MILLIGRAM(S), 1 IN 12 HOUR)
     Route: 048
  44. FUROSEMIDE [Concomitant]
     Active Substance: FUROSEMIDE
     Indication: Oedema peripheral
     Dosage: 40.0 MILLIGRAM(S) (40 MILLIGRAM(S), 1 IN 1 DAY
     Route: 048
  45. FUROSEMIDE [Concomitant]
     Active Substance: FUROSEMIDE
     Dosage: 40.0 MILLIGRAM(S) (40 MILLIGRAM(S), 1 IN 1 DAY
     Route: 048
  46. FUROSEMIDE [Concomitant]
     Active Substance: FUROSEMIDE
     Dosage: 40.0 MILLIGRAM(S) (40 MILLIGRAM(S), 1 IN 1 DAY
     Route: 048
  47. ESTRADIOL [Concomitant]
     Active Substance: ESTRADIOL
     Indication: Endometriosis
     Dosage: 0.5 MILLIGRAM(S) (0.5 MILLIGRAM(S), 1 IN 1 DAY)
     Route: 048
  48. ESTRADIOL [Concomitant]
     Active Substance: ESTRADIOL
     Dosage: 0.5 MILLIGRAM(S) (0.5 MILLIGRAM(S), 1 IN 1 DAY)
     Route: 048
  49. ESTRADIOL [Concomitant]
     Active Substance: ESTRADIOL
     Dosage: 0.5 MILLIGRAM(S) (0.5 MILLIGRAM(S), 1 IN 1 DAY)
     Route: 048
  50. SPIRIVA [Concomitant]
     Active Substance: TIOTROPIUM BROMIDE MONOHYDRATE
     Indication: Chronic obstructive pulmonary disease
     Dosage: 5.0 MICROGRAM(S) (5 MICROGRAM(S), 1 IN 1 DAY)
  51. TIOTROPIUM [Concomitant]
     Active Substance: TIOTROPIUM
     Indication: Chronic obstructive pulmonary disease
     Dosage: 5.0 MICROGRAM(S) (5 MICROGRAM(S), 1 IN 1 DAY), INHALATION USE
  52. TIOTROPIUM [Concomitant]
     Active Substance: TIOTROPIUM
     Dosage: 5.0 MICROGRAM(S) (5 MICROGRAM(S), 1 IN 1 DAY), INHALATION USE
  53. TIOTROPIUM [Concomitant]
     Active Substance: TIOTROPIUM
     Dosage: 5.0 MICROGRAM(S) (5 MICROGRAM(S), 1 IN 1 DAY), INHALATION USE

REACTIONS (4)
  - Respiratory depression [Recovering/Resolving]
  - Depressed level of consciousness [Recovering/Resolving]
  - Toxicity to various agents [Recovering/Resolving]
  - Drug interaction [Unknown]
